FAERS Safety Report 8555523-0 (Version None)
Quarter: 2012Q3

REPORT INFORMATION
  Report Type: 
  Country: None (occurrence: None)
  Receive Date: 20120731
  Receipt Date: 20110803
  Transmission Date: 20120928
  Serious: No
  Sender: FDA-Public Use
  Company Number: US-ASTRAZENECA-2010SE60375

PATIENT
  Age: 81 Year
  Sex: Female
  Weight: 54 kg

DRUGS (20)
  1. SEROQUEL [Suspect]
     Indication: DEMENTIA ALZHEIMER'S TYPE
     Dosage: TWO 25 MG TABLETS AT NIGHT AND TWO IN THE MORNING
     Route: 048
     Dates: start: 20100801, end: 20100101
  2. SEROQUEL [Suspect]
     Dosage: THREE 25 MG TABLETS AT NIGHT AND ONE IN THE MORNING
     Route: 048
     Dates: start: 20100101
  3. SERTRALINE HYDROCHLORIDE [Concomitant]
     Dosage: DAILY
  4. NAMENDA [Concomitant]
  5. VYTORIN [Concomitant]
  6. SEROQUEL [Suspect]
     Dosage: THREE 25 MG TABLETS AT NIGHT AND ONE IN THE MORNING
     Route: 048
     Dates: start: 20100101
  7. DARVOCET [Concomitant]
  8. SEROQUEL [Suspect]
     Indication: ANXIETY
     Dosage: TWO 25 MG TABLETS AT NIGHT AND TWO IN THE MORNING
     Route: 048
     Dates: start: 20100801, end: 20100101
  9. MULTI-VITAMINS [Concomitant]
  10. BENEFIBER [Concomitant]
  11. COLACE [Concomitant]
  12. XANAX [Concomitant]
  13. LEVOXYL [Concomitant]
  14. MIRALAX [Concomitant]
  15. SEROQUEL [Suspect]
     Indication: SLEEP DISORDER
     Dosage: TWO 25 MG TABLETS AT NIGHT AND TWO IN THE MORNING
     Route: 048
     Dates: start: 20100801, end: 20100101
  16. LEVID [Concomitant]
  17. SEROQUEL [Suspect]
     Dosage: THREE 25 MG TABLETS AT NIGHT AND ONE IN THE MORNING
     Route: 048
     Dates: start: 20100101
  18. ASCORBIC ACID [Concomitant]
  19. OMEPRAZOLE [Concomitant]
  20. CALCIUM CARBONATE [Concomitant]

REACTIONS (6)
  - NASAL CONGESTION [None]
  - THERAPEUTIC RESPONSE UNEXPECTED [None]
  - SLEEP DISORDER [None]
  - DRY MOUTH [None]
  - DRUG INEFFECTIVE FOR UNAPPROVED INDICATION [None]
  - GASTROOESOPHAGEAL REFLUX DISEASE [None]
